FAERS Safety Report 4616307-9 (Version None)
Quarter: 2005Q1

REPORT INFORMATION
  Report Type: 
  Country: None (occurrence: None)
  Receive Date: 20050321
  Receipt Date: 20050307
  Transmission Date: 20050727
  Serious: Yes (Other)
  Sender: FDA-Public Use
  Company Number: 2005042488

PATIENT
  Age: 84 Year
  Sex: Male
  Weight: 79.3795 kg

DRUGS (4)
  1. NEURONTIN [Suspect]
     Indication: NEURALGIA
     Dosage: 900 MG (300 MG, 3 IN 1 D), ORAL
     Route: 048
  2. OXYCODONE HYDROCHLORIDE AND ACETAMINOPHEN [Suspect]
     Indication: NEURALGIA
     Dates: start: 20050201, end: 20050101
  3. DILTIAZEM [Concomitant]
  4. CENTRUM (MINERALS NOS, VITAMINS NOS) [Concomitant]

REACTIONS (10)
  - APHAGIA [None]
  - APHASIA [None]
  - CONFUSIONAL STATE [None]
  - DISEASE RECURRENCE [None]
  - DRUG INEFFECTIVE [None]
  - INADEQUATE ANALGESIA [None]
  - MEDICAL DEVICE COMPLICATION [None]
  - NEURALGIA [None]
  - PHARMACEUTICAL PRODUCT COMPLAINT [None]
  - WEIGHT DECREASED [None]
